FAERS Safety Report 8840539 (Version 4)
Quarter: 2012Q4

REPORT INFORMATION
  Report Type: 
  Country: US (occurrence: US)
  Receive Date: 20121015
  Receipt Date: 20121217
  Transmission Date: 20130627
  Serious: Yes (Death, Hospitalization)
  Sender: FDA-Public Use
  Company Number: US-ELI_LILLY_AND_COMPANY-US201210002801

PATIENT
  Sex: Male

DRUGS (3)
  1. FORTEO [Suspect]
     Dosage: 20 ug, qd
     Dates: start: 20120802
  2. FORTEO [Suspect]
     Dosage: 20 ug, qd
  3. FORTEO [Suspect]
     Dosage: 20 ug, qd
     Route: 058
     Dates: start: 20120710

REACTIONS (7)
  - Pneumonia aspiration [Fatal]
  - Pneumonia [Unknown]
  - Poor quality drug administered [Unknown]
  - Urinary tract infection [Unknown]
  - Diarrhoea [Unknown]
  - Hypokalaemia [Unknown]
  - Mental status changes [Unknown]
